FAERS Safety Report 10055672 (Version 3)
Quarter: 2014Q2

REPORT INFORMATION
  Report Type: Spontaneous
  Country: IT (occurrence: IT)
  Receive Date: 20140403
  Receipt Date: 20140513
  Transmission Date: 20141212
  Serious: Yes (Other)
  Sender: FDA-Public Use
  Company Number: IT-AMGEN INC.-ITASP2014023235

PATIENT
  Age: 64 Year
  Sex: Female

DRUGS (4)
  1. ENBREL [Suspect]
     Indication: ANKYLOSING SPONDYLITIS
     Dosage: 50 MG, WEEKLY
     Route: 058
     Dates: start: 20130410
  2. OMEPRAZOLE [Concomitant]
     Dosage: UNK
  3. MICARDIS [Concomitant]
     Dosage: UNK
  4. MICROSER [Concomitant]
     Dosage: UNK

REACTIONS (8)
  - Aphasia [Unknown]
  - Confusional state [Unknown]
  - Urinary incontinence [Unknown]
  - Vertigo [Unknown]
  - Balance disorder [Unknown]
  - Cerebellar syndrome [Unknown]
  - Pyramidal tract syndrome [Unknown]
  - Encephalopathy [Unknown]
